FAERS Safety Report 8964838 (Version 1)
Quarter: 2012Q4

REPORT INFORMATION
  Report Type: 
  Country: FR (occurrence: FR)
  Receive Date: 20121214
  Receipt Date: 20121214
  Transmission Date: 20130627
  Serious: Yes (Death)
  Sender: FDA-Public Use
  Company Number: FR-PFIZER INC-2012311602

PATIENT
  Age: 72 Year
  Sex: Male

DRUGS (19)
  1. TAHOR [Suspect]
     Dosage: 20 mg, UNK
  2. INSPRA [Suspect]
     Indication: CARDIAC INSUFFICIENCY
     Dosage: 25 mg, 1x/day
     Route: 048
  3. INSPRA [Suspect]
     Dosage: 12.5 mg, 1x/day
  4. BISOCE [Suspect]
     Dosage: 2.5 mg, 1x/day
     Route: 048
  5. ESIDREX [Suspect]
     Indication: HYPERTENSION ARTERIAL
     Dosage: 12.5 mg, 1x/day
     Route: 048
     Dates: end: 20120826
  6. IMOVANE [Suspect]
     Dosage: 11.25 mg, 1x/day
     Route: 048
     Dates: end: 20120827
  7. ZOLPIDEM [Suspect]
     Dosage: 1 DF, 1x/day
     Route: 048
  8. PREVISCAN [Concomitant]
     Dosage: 20 mg, UNK
  9. LASILIX [Concomitant]
     Dosage: 500 mg, UNK
  10. LASILIX [Concomitant]
     Dosage: 40 mg, UNK
  11. GLIMEPIRIDE [Concomitant]
     Dosage: UNK
  12. XELEVIA [Concomitant]
     Dosage: 100 mg, UNK
  13. NOVONORM [Concomitant]
     Dosage: 2 mg, UNK
  14. PERMIXON [Concomitant]
     Dosage: 160 mg, UNK
  15. PANTOPRAZOLE [Concomitant]
     Dosage: UNK
  16. DIFFU K [Concomitant]
     Dosage: UNK
  17. ZYLORIC [Concomitant]
     Dosage: 100 mg, UNK
  18. STABLON [Concomitant]
     Dosage: 12.5 mg, UNK
  19. DOLIPRANE [Concomitant]
     Dosage: UNK

REACTIONS (5)
  - Malaise [Fatal]
  - Fall [Fatal]
  - Cerebral haemorrhage [Fatal]
  - Loss of consciousness [Fatal]
  - Hypotension [Fatal]
